FAERS Safety Report 12796594 (Version 2)
Quarter: 2016Q4

REPORT INFORMATION
  Report Type: Spontaneous
  Country: US (occurrence: US)
  Receive Date: 20160929
  Receipt Date: 20161222
  Transmission Date: 20170207
  Serious: Yes (Other)
  Sender: FDA-Public Use
  Company Number: US-TEVA-695921USA

PATIENT
  Age: 62 Year
  Sex: Female
  Weight: 61.29 kg

DRUGS (7)
  1. AZILECT [Suspect]
     Active Substance: RASAGILINE MESYLATE
     Indication: PARKINSON^S DISEASE
     Dates: start: 20160123, end: 2016
  2. TENORMIN [Concomitant]
     Active Substance: ATENOLOL
     Indication: SUPRAVENTRICULAR TACHYCARDIA
     Dosage: 12.5 MILLIGRAM DAILY;
  3. AZILECT [Suspect]
     Active Substance: RASAGILINE MESYLATE
     Dosage: .5 MILLIGRAM DAILY;
     Dates: start: 20160222
  4. AZILECT [Suspect]
     Active Substance: RASAGILINE MESYLATE
     Dosage: INCREASED TO 1MG 900 X 2 TABLETS THEN 1MG DAILY
     Dates: start: 20160324
  5. COZAAR [Concomitant]
     Active Substance: LOSARTAN POTASSIUM
     Dosage: 75 MILLIGRAM DAILY; 50 MG EVERYDAY AM + 25 MG EVERY NIGHT AT BEDTIME
  6. LIPITOR [Concomitant]
     Active Substance: ATORVASTATIN CALCIUM
     Indication: HYPERCHOLESTEROLAEMIA
     Dosage: 20 MILLIGRAM DAILY; 20 MG EVERY NIGHT AT BEDTIME (QHS)
  7. AZILECT [Suspect]
     Active Substance: RASAGILINE MESYLATE
     Dates: start: 20160307

REACTIONS (8)
  - Basal cell carcinoma [Recovered/Resolved]
  - Sebaceous glands overactivity [Not Recovered/Not Resolved]
  - Impaired healing [Not Recovered/Not Resolved]
  - Hypertension [Not Recovered/Not Resolved]
  - Nausea [Recovered/Resolved]
  - Rash [Recovered/Resolved]
  - Dry skin [Not Recovered/Not Resolved]
  - Dysgeusia [Recovered/Resolved]

NARRATIVE: CASE EVENT DATE: 2016
